FAERS Safety Report 9419752 (Version 1)
Quarter: 2013Q3

REPORT INFORMATION
  Report Type: Spontaneous
  Country: NL (occurrence: NL)
  Receive Date: 20130725
  Receipt Date: 20130725
  Transmission Date: 20140515
  Serious: Yes (Death, Other)
  Sender: FDA-Public Use
  Company Number: NL-PFIZER INC-2013216822

PATIENT
  Age: 76 Year
  Sex: Male

DRUGS (5)
  1. CISPLATIN [Suspect]
     Indication: SMALL CELL LUNG CANCER
     Dosage: INSUFFICIENT EFFECT
  2. ETOPOSIDE [Concomitant]
     Indication: SMALL CELL LUNG CANCER
     Dosage: INSUFFICIENT EFFECT
  3. CDE COURSES [Concomitant]
     Indication: SMALL CELL LUNG CANCER
     Dosage: INSUFFICIENT EFFECT
  4. METOPROLOL [Concomitant]
     Dosage: 50 MG, 1X/DAY
     Route: 048
  5. CALCIUM CARBONATE/COLECALCIFEROL [Concomitant]
     Dosage: 1 DF: 1.25G CALCIUM CARBONATE AND 800 IU COLECALCIFEROL (1 DOSAGE FORMS,1 IN 1D

REACTIONS (1)
  - Thrombosis [Fatal]
